FAERS Safety Report 7622334-X (Version None)
Quarter: 2011Q3

REPORT INFORMATION
  Report Type: 
  Country: None (occurrence: None)
  Receive Date: 20110720
  Receipt Date: 20101229
  Transmission Date: 20111222
  Serious: Yes (Death, Hospitalization, Other)
  Sender: FDA-Public Use
  Company Number: US-BAYER-200940616NA

PATIENT
  Age: 57 Year
  Sex: Male
  Weight: 72.562 kg

DRUGS (27)
  1. TRASYLOL [Suspect]
     Indication: CORONARY ARTERY BYPASS
     Dosage: UNK
     Route: 042
     Dates: start: 20010301
  2. HUMULIN N [INSULIN HUMAN] [Concomitant]
     Dosage: 8 UNITS AT BEDTIME
     Route: 058
  3. DOPAMINE HCL [Concomitant]
     Dosage: 2 MG, UNK
     Dates: start: 20010301
  4. MAGNESIUM SULFATE [Concomitant]
     Dosage: 2 PRIME
     Dates: start: 20010301
  5. ALBUMIN (HUMAN) [Concomitant]
     Dosage: 100 PRIME
     Dates: start: 20010301
  6. LASIX [Concomitant]
     Dosage: 80 MG, BID
     Route: 048
  7. PROTONIX [Concomitant]
  8. PROTAMINE SULFATE [Concomitant]
     Dosage: UNK
     Dates: start: 20010301
  9. DEMEROL [Concomitant]
     Dosage: 100 MG, UNK
     Dates: start: 20010301
  10. MANNITOL [Concomitant]
     Dosage: 50 PRIME PLUS 50
     Dates: start: 20010301
  11. AMICAR [Concomitant]
     Dosage: 20 PRIME
     Dates: start: 20010301
  12. HUMULIN N [INSULIN HUMAN] [Concomitant]
     Dosage: 8 U, QD
     Route: 058
  13. SODIUM BICARBONATE [Concomitant]
     Dosage: 100 MEQ, UNK
     Dates: start: 20010301
  14. MAGNESIUM SULFATE [Concomitant]
     Dosage: 1 G, UNK
     Dates: start: 20010301
  15. PAPAVERINE [Concomitant]
     Dosage: 60 MG, UNK
     Dates: start: 20010301
  16. RED BLOOD CELLS [Concomitant]
     Dosage: 4 U, UNK
     Route: 042
     Dates: start: 20010301
  17. NORVASC [Concomitant]
     Dosage: 10 MG, QD
     Route: 048
  18. ANCEF [Concomitant]
  19. MANNITOL [Concomitant]
     Dosage: 50 UNK,
     Dates: start: 20010301
  20. LIDOCAINE [Concomitant]
     Dosage: 100 MG, UNK
     Dates: start: 20010301
  21. PHENYLEPHRINE HCL [Concomitant]
     Dosage: 4 MG, UNK
     Dates: start: 20010301
  22. TRANDATE [Concomitant]
     Dosage: 200 MG, BID
     Route: 048
  23. SODIUM BICARBONATE [Concomitant]
     Dosage: 50 PRIME PLUS 150
     Dates: start: 20010301
  24. LASIX [Concomitant]
     Dosage: UNK
     Dates: start: 20010301
  25. HEPARIN [Concomitant]
     Dosage: 5 PRIME PLUS 10
     Dates: start: 20010301
  26. INSULIN [Concomitant]
     Dosage: 2 UNITS (200-225), 4U (226-250), 6U (251-300), 8U (301-350), 10U (351-400)
     Route: 058
  27. AMICAR [Concomitant]
     Dosage: 1 G/HR
     Dates: start: 20010301

REACTIONS (13)
  - STRESS [None]
  - PAIN [None]
  - RENAL FAILURE [None]
  - EMOTIONAL DISTRESS [None]
  - ANXIETY [None]
  - DEATH [None]
  - RENAL IMPAIRMENT [None]
  - RENAL INJURY [None]
  - MULTI-ORGAN FAILURE [None]
  - INJURY [None]
  - ANHEDONIA [None]
  - UNEVALUABLE EVENT [None]
  - FEAR [None]
